FAERS Safety Report 8909647 (Version 2)
Quarter: 2013Q1

REPORT INFORMATION
  Report Type: Spontaneous
  Country: US (occurrence: None)
  Receive Date: 20121109
  Receipt Date: 20130111
  Transmission Date: 20140127
  Serious: Yes (Death, Other)
  Sender: FDA-Public Use
  Company Number: TPA2012A08775

PATIENT
  Age: 66 Year
  Sex: Male

DRUGS (4)
  1. ACTOS (PIOGLITAZONE HYDROCHLORIDE) [Suspect]
     Indication: TYPE 2 DIABETES MELLITUS
     Dates: start: 200712, end: 201005
  2. AVANDIA(ROSIGLITAZONE MALEATE) [Concomitant]
  3. GLUCOPHAGE(METFORMIN HYDROCHLORIDE) [Concomitant]
  4. AMARYL(GLIMEPIRIDE) [Concomitant]

REACTIONS (1)
  - Bladder cancer [None]
